FAERS Safety Report 22635141 (Version 1)
Quarter: 2023Q2

REPORT INFORMATION
  Report Type: Spontaneous
  Country: ES (occurrence: ES)
  Receive Date: 20230623
  Receipt Date: 20230623
  Transmission Date: 20230722
  Serious: Yes (Hospitalization, Other)
  Sender: FDA-Public Use
  Company Number: ES-AEMPS-1067814

PATIENT
  Sex: Male

DRUGS (1)
  1. NOREPINEPHRINE [Suspect]
     Active Substance: NOREPINEPHRINE
     Indication: Vessel puncture site phlebitis
     Dosage: UNK
     Route: 050
     Dates: start: 20211206, end: 20211206

REACTIONS (2)
  - Medication error [Unknown]
  - Vessel puncture site phlebitis [Unknown]

NARRATIVE: CASE EVENT DATE: 20211206
